FAERS Safety Report 13031931 (Version 1)
Quarter: 2016Q4

REPORT INFORMATION
  Report Type: Spontaneous
  Country: JP (occurrence: JP)
  Receive Date: 20161215
  Receipt Date: 20161215
  Transmission Date: 20170207
  Serious: Yes (Hospitalization)
  Sender: FDA-Public Use
  Company Number: JP-009507513-1612JPN004117

PATIENT
  Age: 3 Year
  Sex: Female
  Weight: 11.5 kg

DRUGS (5)
  1. TAZOPIPE [Concomitant]
     Active Substance: PIPERACILLIN SODIUM\TAZOBACTAM SODIUM
     Dosage: 1.125 G, UNK
     Route: 051
     Dates: end: 20161103
  2. FUNGIZONE [Concomitant]
     Active Substance: AMPHOTERICIN B
     Dosage: 5 MG, UNK
     Route: 043
     Dates: start: 20161101, end: 20161115
  3. ZYVOX [Concomitant]
     Active Substance: LINEZOLID
     Dosage: 110 MG, UNK
  4. CANCIDAS [Suspect]
     Active Substance: CASPOFUNGIN ACETATE
     Dosage: 25 MG, QD
     Route: 041
     Dates: start: 20161102, end: 20161115
  5. CANCIDAS [Suspect]
     Active Substance: CASPOFUNGIN ACETATE
     Indication: OESOPHAGEAL CANDIDIASIS
     Dosage: 35 MG, QD
     Route: 041
     Dates: start: 20161101, end: 20161101

REACTIONS (2)
  - Neutrophil count increased [Recovering/Resolving]
  - White blood cell count increased [Recovering/Resolving]

NARRATIVE: CASE EVENT DATE: 20161102
